FAERS Safety Report 25952729 (Version 2)
Quarter: 2025Q4

REPORT INFORMATION
  Report Type: Report from Study
  Country: US (occurrence: US)
  Receive Date: 20251023
  Receipt Date: 20251110
  Transmission Date: 20260118
  Serious: Yes (Hospitalization)
  Sender: ABBVIE
  Company Number: US-ABBVIE-6384917

PATIENT
  Age: 52 Year
  Sex: Female

DRUGS (2)
  1. RINVOQ [Suspect]
     Active Substance: UPADACITINIB
     Indication: Dermatitis atopic
     Route: 048
     Dates: start: 20250715
  2. RINVOQ [Suspect]
     Active Substance: UPADACITINIB
     Indication: Dermatitis atopic
     Dosage: FORM STRENGTH: 15MG
     Route: 048
     Dates: end: 202509

REACTIONS (22)
  - Eczema infected [Unknown]
  - Nausea [Not Recovered/Not Resolved]
  - Headache [Recovering/Resolving]
  - Pyrexia [Recovered/Resolved]
  - Chills [Unknown]
  - Pain [Unknown]
  - Chest pain [Recovered/Resolved]
  - Sputum discoloured [Recovering/Resolving]
  - Abdominal pain upper [Not Recovered/Not Resolved]
  - Dermatitis atopic [Recovering/Resolving]
  - Dizziness [Not Recovered/Not Resolved]
  - Rash [Not Recovered/Not Resolved]
  - Oral candidiasis [Recovering/Resolving]
  - Cellulitis [Unknown]
  - Productive cough [Unknown]
  - Arthralgia [Unknown]
  - Dry throat [Unknown]
  - Fungal infection [Unknown]
  - Sepsis [Unknown]
  - Wound [Not Recovered/Not Resolved]
  - Bacterial infection [Unknown]
  - Mastitis fungal [Unknown]

NARRATIVE: CASE EVENT DATE: 20250101
